FAERS Safety Report 9314762 (Version 8)
Quarter: 2013Q3

REPORT INFORMATION
  Report Type: Spontaneous
  Country: US (occurrence: US)
  Receive Date: 20130529
  Receipt Date: 20130924
  Transmission Date: 20140515
  Serious: No
  Sender: FDA-Public Use
  Company Number: US-VERTEX PHARMACEUTICALS INC-2013-006476

PATIENT
  Age: 58 Year
  Sex: Male
  Weight: 117 kg

DRUGS (7)
  1. INCIVEK [Suspect]
     Indication: HEPATITIS C
     Dosage: 750 MG, TID
     Route: 048
     Dates: start: 20130524, end: 20130816
  2. PEGASYS [Suspect]
     Indication: HEPATITIS C
     Dosage: 180 ?G, QW
     Route: 058
     Dates: start: 20130524, end: 2013
  3. PEGASYS [Suspect]
     Dosage: 135 ?G, QW
     Route: 058
     Dates: start: 2013, end: 2013
  4. PEGASYS [Suspect]
     Dosage: 180 ?G, QW
     Route: 058
     Dates: start: 2013
  5. RIBAVIRIN [Suspect]
     Indication: HEPATITIS C
     Dosage: 600 MG, BID
     Route: 048
     Dates: start: 20130524, end: 201306
  6. RIBAVIRIN [Suspect]
     Dosage: 1 TAB AM, 2 TABS PM
     Route: 048
     Dates: start: 201306
  7. ADVAIR [Concomitant]
     Dosage: 1 PUFF, IH

REACTIONS (15)
  - Blood count abnormal [Unknown]
  - Headache [Not Recovered/Not Resolved]
  - Glassy eyes [Not Recovered/Not Resolved]
  - Pain [Not Recovered/Not Resolved]
  - Weight increased [Unknown]
  - Depression [Recovered/Resolved]
  - Dry throat [Not Recovered/Not Resolved]
  - Drug dose omission [Recovered/Resolved]
  - White blood cell count decreased [Unknown]
  - Asthenia [Recovered/Resolved]
  - Anaemia [Unknown]
  - Rash erythematous [Recovered/Resolved]
  - Rash papular [Recovered/Resolved]
  - Nausea [Recovered/Resolved]
  - Anorectal discomfort [Not Recovered/Not Resolved]
